FAERS Safety Report 7223042-X (Version None)
Quarter: 2011Q1

REPORT INFORMATION
  Report Type: 
  Country: None (occurrence: None)
  Receive Date: 20110112
  Receipt Date: 20110104
  Transmission Date: 20110831
  Serious: Yes (Hospitalization)
  Sender: FDA-Public Use
  Company Number: JP-AMGEN-KDC422280

PATIENT

DRUGS (19)
  1. EMEND                              /01627301/ [Suspect]
     Dosage: 80 MG, QD
     Route: 048
     Dates: start: 20100623, end: 20100624
  2. PANITUMUMAB [Suspect]
     Indication: COLORECTAL CANCER
     Dosage: 6 MG/KG, Q2WK
     Route: 041
     Dates: start: 20100622, end: 20100622
  3. ACTOS TABLETS 30 [Concomitant]
     Dosage: 30 MG, QD
     Route: 048
  4. OXALIPLATIN [Concomitant]
     Route: 041
     Dates: start: 20100622, end: 20100903
  5. CONIEL [Concomitant]
     Dosage: 4 MG, QD
     Route: 048
  6. CALCIUM LEVOFOLINATE [Concomitant]
     Route: 041
     Dates: start: 20100917, end: 20101022
  7. EMEND                              /01627301/ [Suspect]
     Dosage: 125 MG, QD
     Route: 048
     Dates: start: 20100622, end: 20100622
  8. OXALIPLATIN [Concomitant]
     Dosage: 120 MG, Q2WK
     Route: 041
     Dates: start: 20100622, end: 20100903
  9. KYTRIL                             /01178102/ [Concomitant]
     Dosage: 3 MG, QD
     Route: 042
  10. LEUCOVORIN CALCIUM [Concomitant]
  11. BASEN TABLETS 0.2 [Concomitant]
     Dosage: .2 MG, TID
     Route: 048
  12. FLUOROURACIL [Concomitant]
     Dosage: 580 MG, Q2WK
     Route: 040
     Dates: start: 20100622, end: 20100903
  13. FLUOROURACIL [Concomitant]
     Dosage: 880 MG, Q2WK
     Route: 041
     Dates: start: 20100622, end: 20100903
  14. FLUOROURACIL [Concomitant]
     Route: 040
     Dates: start: 20100917, end: 20101022
  15. CALCIUM LEVOFOLINATE [Concomitant]
     Route: 041
     Dates: start: 20100622, end: 20100903
  16. CORTICOSTEROIDS [Concomitant]
     Indication: PROPHYLAXIS
     Route: 065
  17. PANITUMUMAB [Suspect]
     Dosage: 6 MG/KG, Q2WK
     Route: 041
     Dates: start: 20100804, end: 20101022
  18. FLUOROURACIL [Concomitant]
     Route: 041
     Dates: start: 20100917, end: 20101022
  19. IRINOTECAN HYDROCHLORIDE [Concomitant]
     Indication: COLORECTAL CANCER
     Route: 041
     Dates: start: 20100917, end: 20101022

REACTIONS (2)
  - CHEILITIS [None]
  - URINARY RETENTION [None]
